FAERS Safety Report 11521895 (Version 1)
Quarter: 2015Q3

REPORT INFORMATION
  Report Type: Spontaneous
  Country: US (occurrence: US)
  Receive Date: 20150918
  Receipt Date: 20150918
  Transmission Date: 20151125
  Serious: Yes (Other)
  Sender: FDA-Public Use
  Company Number: US-INCYTE CORPORATION-2015IN004618

PATIENT
  Age: 57 Year
  Sex: Female

DRUGS (2)
  1. JAKAFI [Suspect]
     Active Substance: RUXOLITINIB
     Indication: POLYCYTHAEMIA VERA
     Dosage: 15 MG, BID
     Dates: start: 20150710
  2. LOSARTAN. [Concomitant]
     Active Substance: LOSARTAN
     Dosage: 50 MG, QD

REACTIONS (6)
  - Thirst [Unknown]
  - Upper limb fracture [Unknown]
  - Loss of consciousness [Unknown]
  - Weight decreased [Unknown]
  - Crying [Unknown]
  - Fall [Unknown]

NARRATIVE: CASE EVENT DATE: 20150710
